FAERS Safety Report 14534344 (Version 1)
Quarter: 2018Q1

REPORT INFORMATION
  Report Type: Report from Study
  Country: DE (occurrence: DE)
  Receive Date: 20180215
  Receipt Date: 20180215
  Transmission Date: 20180509
  Serious: Yes (Death)
  Sender: FDA-Public Use
  Company Number: PHHO2018DE002253

PATIENT
  Age: 48 Year
  Sex: Male
  Weight: 76.3 kg

DRUGS (5)
  1. MIDOSTAURIN [Suspect]
     Active Substance: MIDOSTAURIN
     Indication: ACUTE MYELOID LEUKAEMIA
     Dosage: UNK
     Route: 048
     Dates: end: 20171226
  2. DAUNORUBICIN [Suspect]
     Active Substance: DAUNORUBICIN
     Indication: ACUTE MYELOID LEUKAEMIA
     Dosage: UNK
     Route: 042
  3. CYTARABINE. [Suspect]
     Active Substance: CYTARABINE
     Indication: ACUTE MYELOID LEUKAEMIA
     Dosage: UNK
     Route: 042
  4. DAUNORUBICIN [Suspect]
     Active Substance: DAUNORUBICIN
     Dosage: 114 MG, UNK
     Route: 042
     Dates: start: 20180112, end: 20180114
  5. CYTARABINE. [Suspect]
     Active Substance: CYTARABINE
     Dosage: 380 MG, UNK
     Route: 042
     Dates: start: 20080112, end: 20180118

REACTIONS (1)
  - Death [Fatal]

NARRATIVE: CASE EVENT DATE: 20180203
